FAERS Safety Report 5157433-8 (Version None)
Quarter: 2006Q4

REPORT INFORMATION
  Report Type: 
  Country: None (occurrence: None)
  Receive Date: 20061127
  Receipt Date: 20061116
  Transmission Date: 20070319
  Serious: Yes (Other)
  Sender: FDA-Public Use
  Company Number: JP-ROCHE-471867

PATIENT
  Age: 38 Year
  Sex: Male

DRUGS (3)
  1. CELLCEPT [Suspect]
     Indication: PROPHYLAXIS AGAINST GRAFT VERSUS HOST DISEASE
     Route: 048
     Dates: start: 20020615
  2. PREDNISOLONE [Concomitant]
  3. CLARITHROMYCIN [Concomitant]
     Route: 048

REACTIONS (1)
  - LEUKOENCEPHALOPATHY [None]
